FAERS Safety Report 7041012-1 (Version None)
Quarter: 2010Q4

REPORT INFORMATION
  Report Type: 
  Country: None (occurrence: None)
  Receive Date: 20101013
  Receipt Date: 20101008
  Transmission Date: 20110411
  Serious: Yes (Death)
  Sender: FDA-Public Use
  Company Number: PHHY2010MX67764

PATIENT
  Age: 81 Year
  Sex: Female

DRUGS (2)
  1. EXELON [Suspect]
     Indication: DEMENTIA ALZHEIMER'S TYPE
     Dosage: 1 DF, QD
     Route: 062
     Dates: start: 20080801
  2. EXELON [Suspect]
     Dosage: 1 PATCH 10CM2 DAILY
     Route: 062
     Dates: start: 20080901

REACTIONS (1)
  - DEATH [None]
